FAERS Safety Report 22199009 (Version 4)
Quarter: 2024Q3

REPORT INFORMATION
  Report Type: Report from Study
  Country: CA (occurrence: CA)
  Receive Date: 20230411
  Receipt Date: 20240701
  Transmission Date: 20241016
  Serious: Yes (Hospitalization, Other)
  Sender: IPSEN
  Company Number: CA-KOREA IPSEN Pharma-2023-08303

PATIENT
  Age: 75 Year
  Sex: Male

DRUGS (3)
  1. LANREOTIDE ACETATE [Suspect]
     Active Substance: LANREOTIDE ACETATE
     Indication: Gastroenteropancreatic neuroendocrine tumour disease
     Dosage: DEEP SUBCUTANEOUS
     Route: 058
     Dates: start: 20220401
  2. LANREOTIDE ACETATE [Suspect]
     Active Substance: LANREOTIDE ACETATE
     Indication: Carcinoid syndrome
  3. LIPITOR [Concomitant]
     Active Substance: ATORVASTATIN CALCIUM

REACTIONS (5)
  - Cerebrovascular accident [Recovering/Resolving]
  - Carotid arteriosclerosis [Recovering/Resolving]
  - Discomfort [Recovering/Resolving]
  - Paraesthesia [Recovering/Resolving]
  - Nerve injury [Unknown]

NARRATIVE: CASE EVENT DATE: 20230301
